FAERS Safety Report 17101173 (Version 2)
Quarter: 2019Q4

REPORT INFORMATION
  Report Type: Report from Study
  Country: US (occurrence: US)
  Receive Date: 20191202
  Receipt Date: 20191223
  Transmission Date: 20200122
  Serious: Yes (Other)
  Sender: FDA-Public Use
  Company Number: US-ACTELION-A-NJ2019-195994

PATIENT
  Sex: Female
  Weight: 43.99 kg

DRUGS (6)
  1. ADEMPAS [Concomitant]
     Active Substance: RIOCIGUAT
  2. UPTRAVI [Suspect]
     Active Substance: SELEXIPAG
     Indication: PULMONARY HYPERTENSION
     Dosage: 1200 MCG, BID
     Route: 048
  3. LETAIRIS [Concomitant]
     Active Substance: AMBRISENTAN
  4. UPTRAVI [Suspect]
     Active Substance: SELEXIPAG
     Dosage: 1000 MCG, BID
     Route: 048
     Dates: end: 201911
  5. UPTRAVI [Suspect]
     Active Substance: SELEXIPAG
     Dosage: 800 MCG, BID
     Route: 048
  6. UPTRAVI [Suspect]
     Active Substance: SELEXIPAG
     Dosage: 600 MCG, BID
     Route: 048

REACTIONS (16)
  - Pain [Recovered/Resolved]
  - Therapy non-responder [Unknown]
  - Fluid retention [Recovering/Resolving]
  - General physical health deterioration [Recovering/Resolving]
  - Condition aggravated [Recovering/Resolving]
  - Headache [Recovering/Resolving]
  - Nausea [Unknown]
  - Dyspnoea [Recovering/Resolving]
  - Heart rate decreased [Recovering/Resolving]
  - Peripheral swelling [Recovered/Resolved]
  - Arthralgia [Recovered/Resolved]
  - Arrhythmia [Unknown]
  - Abdominal pain upper [Recovered/Resolved]
  - Influenza like illness [Recovered/Resolved]
  - Joint swelling [Recovered/Resolved]
  - Palpitations [Recovering/Resolving]
